FAERS Safety Report 10765331 (Version 1)
Quarter: 2015Q1

REPORT INFORMATION
  Report Type: Report from Study
  Country: CA (occurrence: CA)
  Receive Date: 20150205
  Receipt Date: 20150205
  Transmission Date: 20150721
  Serious: Yes (Other)
  Sender: FDA-Public Use
  Company Number: CA-ROCHE-1532361

PATIENT
  Age: 57 Year
  Sex: Female

DRUGS (3)
  1. SOFOSBUVIR [Suspect]
     Active Substance: SOFOSBUVIR
     Indication: HEPATITIS C
     Route: 048
     Dates: start: 20140212, end: 20140528
  2. COPEGUS [Suspect]
     Active Substance: RIBAVIRIN
     Indication: HEPATITIS C
     Route: 048
     Dates: start: 20140212, end: 20140427
  3. COPEGUS [Suspect]
     Active Substance: RIBAVIRIN
     Route: 048
     Dates: start: 20140428

REACTIONS (3)
  - Hepatitis C [Unknown]
  - Haemoglobin decreased [Unknown]
  - Drug ineffective [Unknown]
